FAERS Safety Report 24960674 (Version 1)
Quarter: 2025Q1

REPORT INFORMATION
  Report Type: Spontaneous
  Country: GR (occurrence: GR)
  Receive Date: 20250212
  Receipt Date: 20250212
  Transmission Date: 20250409
  Serious: Yes (Other)
  Sender: PFIZER
  Company Number: GR-UCBSA-2025006005

PATIENT
  Age: 9 Year
  Sex: Male

DRUGS (6)
  1. LEVETIRACETAM [Suspect]
     Active Substance: LEVETIRACETAM
  2. BRIVARACETAM [Suspect]
     Active Substance: BRIVARACETAM
  3. VALPROIC ACID [Concomitant]
     Active Substance: VALPROIC ACID
  4. OXCARBAZEPINE [Concomitant]
     Active Substance: OXCARBAZEPINE
  5. CLOBAZAM [Concomitant]
     Active Substance: CLOBAZAM
  6. LAMOTRIGINE [Concomitant]
     Active Substance: LAMOTRIGINE

REACTIONS (2)
  - Seizure [Unknown]
  - Fatigue [Unknown]
